FAERS Safety Report 19940178 (Version 1)
Quarter: 2021Q4

REPORT INFORMATION
  Report Type: Spontaneous
  Country: ES (occurrence: ES)
  Receive Date: 20211012
  Receipt Date: 20211012
  Transmission Date: 20220303
  Serious: Yes (Death, Other)
  Sender: FDA-Public Use
  Company Number: ES-AMGEN-ESPSP2021154257

PATIENT

DRUGS (2)
  1. TRASTUZUMAB [Suspect]
     Active Substance: TRASTUZUMAB
     Indication: HER2 positive breast cancer
     Dosage: UNK
     Route: 065
  2. PERTUZUMAB [Concomitant]
     Active Substance: PERTUZUMAB
     Indication: Breast cancer
     Dosage: UNK

REACTIONS (11)
  - Breast cancer [Fatal]
  - Aspiration [Fatal]
  - Respiratory failure [Fatal]
  - Breast cancer metastatic [Unknown]
  - Breast cancer recurrent [Unknown]
  - Septic shock [Unknown]
  - Dermatitis [Unknown]
  - Treatment failure [Unknown]
  - Oesophagitis [Unknown]
  - Skin hyperpigmentation [Unknown]
  - Off label use [Unknown]
